FAERS Safety Report 12040308 (Version 5)
Quarter: 2017Q1

REPORT INFORMATION
  Report Type: Spontaneous
  Country: US (occurrence: US)
  Receive Date: 20160208
  Receipt Date: 20170123
  Transmission Date: 20170428
  Serious: Yes (Hospitalization, Other)
  Sender: FDA-Public Use
  Company Number: US-AUROBINDO-AUR-APL-2016-00947

PATIENT
  Age: 69 Year
  Sex: Female

DRUGS (46)
  1. VANCOMYCIN [Suspect]
     Active Substance: VANCOMYCIN
     Dosage: 750 MG, BID
     Route: 042
  2. TOBRAMYCIN. [Suspect]
     Active Substance: TOBRAMYCIN
     Dosage: 10.8 G, SINGLE
  3. CEPHALEXIN. [Suspect]
     Active Substance: CEPHALEXIN
     Indication: PAIN
     Route: 048
  4. TRIMETHOPRIM+SULFAMETHOXAZOLE [Suspect]
     Active Substance: SULFAMETHOXAZOLE\TRIMETHOPRIM
     Indication: PRODUCT USED FOR UNKNOWN INDICATION
     Dosage: UNK
     Route: 065
  5. VANCOMYCIN [Suspect]
     Active Substance: VANCOMYCIN
     Dosage: 750 MG, UNK
     Route: 042
  6. VANCOMYCIN [Suspect]
     Active Substance: VANCOMYCIN
     Dosage: 12 G, SINGLE
  7. ZOSYN [Suspect]
     Active Substance: PIPERACILLIN SODIUM\TAZOBACTAM SODIUM
     Indication: PRODUCT USED FOR UNKNOWN INDICATION
     Dosage: 3.375 G, EVERY 6 HOURS
     Route: 042
  8. ZOSYN [Suspect]
     Active Substance: PIPERACILLIN SODIUM\TAZOBACTAM SODIUM
     Dosage: 3.375 GM IV Q6H
     Route: 042
  9. TOBRAMYCIN. [Suspect]
     Active Substance: TOBRAMYCIN
     Indication: KNEE ARTHROPLASTY
     Dosage: 10.8 G, UNK
     Route: 042
  10. TOBRAMYCIN. [Suspect]
     Active Substance: TOBRAMYCIN
     Dosage: 3.6 G, UNK
     Route: 042
  11. TOBRAMYCIN. [Suspect]
     Active Substance: TOBRAMYCIN
     Dosage: 3.8 MCG/ML, UNK
     Route: 042
  12. TOBRAMYCIN. [Suspect]
     Active Substance: TOBRAMYCIN
     Dosage: 3.6 G, SINGLE
  13. TOBRAMYCIN. [Suspect]
     Active Substance: TOBRAMYCIN
     Dosage: 10.8 G, SINGLE
  14. DULOXETINE. [Concomitant]
     Active Substance: DULOXETINE
     Indication: PRODUCT USED FOR UNKNOWN INDICATION
     Dosage: UNK
     Route: 065
  15. PAROXETINE. [Concomitant]
     Active Substance: PAROXETINE
     Indication: PRODUCT USED FOR UNKNOWN INDICATION
     Route: 065
  16. RIFAMPIN. [Concomitant]
     Active Substance: RIFAMPIN
     Indication: PRODUCT USED FOR UNKNOWN INDICATION
     Route: 048
  17. VANCOMYCIN [Suspect]
     Active Substance: VANCOMYCIN
     Dosage: 1 G, BID
     Route: 065
  18. ENALAPRIL [Suspect]
     Active Substance: ENALAPRIL
     Indication: PRODUCT USED FOR UNKNOWN INDICATION
  19. AJ PIP/TAZ [Suspect]
     Active Substance: PIPERACILLIN SODIUM\TAZOBACTAM SODIUM
     Indication: PRODUCT USED FOR UNKNOWN INDICATION
     Dosage: UNK
     Route: 042
  20. TOBRAMYCIN. [Suspect]
     Active Substance: TOBRAMYCIN
     Dosage: 3.6 G, SINGLE
  21. CEPHALEXIN. [Suspect]
     Active Substance: CEPHALEXIN
     Indication: SWELLING
  22. VANCOMYCIN [Suspect]
     Active Substance: VANCOMYCIN
     Dosage: 4 G, SINGLE
  23. VANCOMYCIN [Suspect]
     Active Substance: VANCOMYCIN
     Dosage: 1 G, BID
     Route: 042
  24. VANCOMYCIN [Suspect]
     Active Substance: VANCOMYCIN
     Dosage: 750 MG, BID
     Route: 042
  25. TOBRAMYCIN. [Suspect]
     Active Substance: TOBRAMYCIN
     Dosage: 10.8 G, SINGLE
  26. TOBRAMYCIN. [Suspect]
     Active Substance: TOBRAMYCIN
     Dosage: 3.6 G, SINGLE
  27. MORPHINE [Concomitant]
     Active Substance: MORPHINE
     Indication: PRODUCT USED FOR UNKNOWN INDICATION
     Route: 065
  28. RIFAMPICIN [Concomitant]
     Active Substance: RIFAMPIN
     Indication: PRODUCT USED FOR UNKNOWN INDICATION
     Dosage: UNK
  29. VANCOMYCIN [Suspect]
     Active Substance: VANCOMYCIN
     Dosage: 4 G, UNK
     Route: 065
  30. VANCOMYCIN [Suspect]
     Active Substance: VANCOMYCIN
     Dosage: 23.1 MCG/ML, UNK
     Route: 042
  31. VANCOMYCIN [Suspect]
     Active Substance: VANCOMYCIN
     Dosage: 1 G, BID
     Route: 042
  32. VANCOMYCIN [Suspect]
     Active Substance: VANCOMYCIN
     Dosage: 4 G, SINGLE
  33. HYDROCHLOROTHIAZIDE. [Suspect]
     Active Substance: HYDROCHLOROTHIAZIDE
     Indication: PRODUCT USED FOR UNKNOWN INDICATION
     Route: 065
  34. VANCOMYCIN [Suspect]
     Active Substance: VANCOMYCIN
     Dosage: 30.5 MCG/ML, UNK
     Route: 042
  35. HYDROCODONE W/ACETAMINOPHEN [Concomitant]
     Active Substance: ACETAMINOPHEN\HYDROCODONE BITARTRATE
     Indication: PRODUCT USED FOR UNKNOWN INDICATION
     Route: 065
  36. VANCOMYCIN [Suspect]
     Active Substance: VANCOMYCIN
     Dosage: 19 MCG/ML, UNK
     Route: 042
  37. VANCOMYCIN [Suspect]
     Active Substance: VANCOMYCIN
     Dosage: 4 G, SINGLE
     Route: 065
  38. SOLIFENACIN [Concomitant]
     Active Substance: SOLIFENACIN
     Indication: PRODUCT USED FOR UNKNOWN INDICATION
     Route: 065
  39. AMLODIPINE [Concomitant]
     Active Substance: AMLODIPINE BESYLATE
     Indication: PRODUCT USED FOR UNKNOWN INDICATION
     Route: 065
  40. DAPTOMYCIN. [Concomitant]
     Active Substance: DAPTOMYCIN
     Indication: PRODUCT USED FOR UNKNOWN INDICATION
     Route: 042
  41. LISINOPRIL. [Suspect]
     Active Substance: LISINOPRIL
     Indication: HYPERTENSION
     Dosage: 20 MG, ONCE A DAY (20 MG PO QD)
     Route: 048
  42. VANCOMYCIN [Suspect]
     Active Substance: VANCOMYCIN
     Indication: PRODUCT USED FOR UNKNOWN INDICATION
     Dosage: 1 G, UNK
     Route: 042
  43. VANCOMYCIN [Suspect]
     Active Substance: VANCOMYCIN
     Dosage: 12 G, SINGLE
     Route: 065
  44. VANCOMYCIN [Suspect]
     Active Substance: VANCOMYCIN
     Dosage: 750 MG, BID
     Route: 042
  45. VANCOMYCIN [Suspect]
     Active Substance: VANCOMYCIN
     Dosage: 12 G, SINGLE
  46. TOBRAMYCIN. [Suspect]
     Active Substance: TOBRAMYCIN
     Dosage: 5.8 MCG/ML, UNK
     Route: 042

REACTIONS (7)
  - Renal tubular necrosis [Recovered/Resolved]
  - Blood pressure decreased [Recovered/Resolved]
  - Hypotension [Recovered/Resolved]
  - Haemoglobin decreased [Unknown]
  - Acute kidney injury [Recovered/Resolved]
  - Drug clearance decreased [Unknown]
  - Arthritis bacterial [Unknown]

NARRATIVE: CASE EVENT DATE: 20121207
